FAERS Safety Report 8422527-8 (Version None)
Quarter: 2012Q2

REPORT INFORMATION
  Report Type: 
  Country: None (occurrence: None)
  Receive Date: 20120608
  Receipt Date: 20120525
  Transmission Date: 20120825
  Serious: Yes (Death)
  Sender: FDA-Public Use
  Company Number: GB-WATSON-2012-09521

PATIENT
  Age: 40 Year
  Sex: Male
  Weight: 104 kg

DRUGS (4)
  1. HUMIRA [Concomitant]
     Indication: CROHN'S DISEASE
     Dosage: UNK
     Route: 058
     Dates: start: 20111005, end: 20111019
  2. ORAMORPH SR [Concomitant]
     Indication: PAIN
     Dosage: 100 MG, DAILY
     Route: 048
     Dates: end: 20111027
  3. CLARITHROMYCIN [Suspect]
     Indication: INFECTION
     Dosage: 500 MG, UNKNOWN
     Route: 048
     Dates: start: 20111028, end: 20111030
  4. METHADONE HCL [Suspect]
     Indication: PAIN
     Dosage: 45 MG, UNKNOWN
     Route: 048
     Dates: start: 20111025, end: 20111030

REACTIONS (2)
  - DEATH [None]
  - INHIBITORY DRUG INTERACTION [None]
